FAERS Safety Report 5839057-X (Version None)
Quarter: 2008Q3

REPORT INFORMATION
  Report Type: 
  Country: None (occurrence: None)
  Receive Date: 20080808
  Receipt Date: 20080731
  Transmission Date: 20090109
  Serious: Yes (Death)
  Sender: FDA-Public Use
  Company Number: FR-GENENTECH-265273

PATIENT
  Age: 2 Year
  Sex: Female

DRUGS (1)
  1. NUTROPIN [Suspect]
     Indication: PRADER-WILLI SYNDROME
     Dosage: UNK

REACTIONS (1)
  - RESPIRATORY FAILURE [None]
